FAERS Safety Report 22183640 (Version 1)
Quarter: 2023Q2

REPORT INFORMATION
  Report Type: Spontaneous
  Country: BR (occurrence: BR)
  Receive Date: 20230406
  Receipt Date: 20230406
  Transmission Date: 20230721
  Serious: Yes (Other)
  Sender: FDA-Public Use
  Company Number: BR-AMGEN-BRASP2023055105

PATIENT
  Age: 68 Year
  Sex: Female
  Weight: 52 kg

DRUGS (6)
  1. PROLIA [Suspect]
     Active Substance: DENOSUMAB
     Indication: Osteoporosis
     Dosage: UNK, Q6MO
     Route: 058
     Dates: start: 20220829
  2. Aderan [Concomitant]
  3. CALCIUM [Concomitant]
     Active Substance: CALCIUM
  4. LOSARTAN [Concomitant]
     Active Substance: LOSARTAN
  5. THYROID [Concomitant]
     Active Substance: LEVOTHYROXINE\LIOTHYRONINE
  6. ESTROGENS [Concomitant]
     Active Substance: ESTROGENS

REACTIONS (6)
  - Arthritis infective [Unknown]
  - Joint injury [Unknown]
  - Dermatosis [Unknown]
  - Osteoporosis [Unknown]
  - Macule [Unknown]
  - Fall [Unknown]

NARRATIVE: CASE EVENT DATE: 20221001
